FAERS Safety Report 4578032-2 (Version None)
Quarter: 2005Q1

REPORT INFORMATION
  Report Type: 
  Country: None (occurrence: None)
  Receive Date: 20050127
  Receipt Date: 20040831
  Transmission Date: 20050727
  Serious: No
  Sender: FDA-Public Use
  Company Number: USA040977054

PATIENT
  Age: 55 Year
  Sex: Female
  Weight: 73 kg

DRUGS (3)
  1. STRATTERA [Suspect]
     Indication: ATTENTION DEFICIT/HYPERACTIVITY DISORDER
     Dosage: 40 MG DAY
     Dates: start: 20040821
  2. PROZAC [Suspect]
     Dates: end: 19890101
  3. LEXAPRO [Concomitant]

REACTIONS (3)
  - FATIGUE [None]
  - FEELING ABNORMAL [None]
  - NERVOUSNESS [None]
